FAERS Safety Report 10163851 (Version 1)
Quarter: 2014Q2

REPORT INFORMATION
  Report Type: Report from Study
  Country: CA (occurrence: CA)
  Receive Date: 20140509
  Receipt Date: 20140509
  Transmission Date: 20141212
  Serious: Yes (Other)
  Sender: FDA-Public Use
  Company Number: CA-ABBVIE-14P-028-1232157-00

PATIENT
  Sex: Male

DRUGS (2)
  1. HUMIRA [Suspect]
     Indication: ANKYLOSING SPONDYLITIS
     Route: 058
     Dates: start: 20131021, end: 20140209
  2. HUMIRA [Suspect]
     Route: 058
     Dates: start: 20140309

REACTIONS (2)
  - Arthropathy [Recovered/Resolved]
  - Drug ineffective [Unknown]
